FAERS Safety Report 12586477 (Version 2)
Quarter: 2016Q3

REPORT INFORMATION
  Report Type: Spontaneous
  Country: US (occurrence: US)
  Receive Date: 20160725
  Receipt Date: 20160728
  Transmission Date: 20161109
  Serious: No
  Sender: FDA-Public Use
  Company Number: US-PFIZER INC-2015405897

PATIENT
  Age: 73 Year
  Sex: Male
  Weight: 77.5 kg

DRUGS (9)
  1. JANTOVEN [Suspect]
     Active Substance: WARFARIN SODIUM
     Indication: THROMBOSIS PROPHYLAXIS
     Dosage: 5 MG, 1X/DAY
     Route: 048
     Dates: start: 20151115
  2. NADOLOL. [Concomitant]
     Active Substance: NADOLOL
     Indication: HYPOTENSION
     Dosage: 20 MG, 1X/DAY
     Route: 048
  3. XARELTO [Suspect]
     Active Substance: RIVAROXABAN
     Indication: THROMBOSIS PROPHYLAXIS
     Dosage: 20 MG, 1X/DAY
     Route: 048
  4. TIKOSYN [Suspect]
     Active Substance: DOFETILIDE
     Indication: ATRIAL FIBRILLATION
     Dosage: 500 UG, QD
     Route: 048
     Dates: start: 20140623
  5. LISINOPRIL. [Concomitant]
     Active Substance: LISINOPRIL
     Indication: BLOOD PRESSURE DECREASED
     Dosage: 2.5 MG, 1X/DAY
     Route: 048
     Dates: start: 20140623
  6. PRADAXA [Suspect]
     Active Substance: DABIGATRAN ETEXILATE MESYLATE
     Indication: THROMBOSIS PROPHYLAXIS
     Dosage: 150 MG, 2X/DAY
     Route: 048
     Dates: start: 20140319, end: 20150723
  7. ELIQUIS [Suspect]
     Active Substance: APIXABAN
     Indication: THROMBOSIS PROPHYLAXIS
     Dosage: 5 MG, 2X/DAY
     Route: 048
     Dates: start: 20150723, end: 20150923
  8. NADOLOL. [Concomitant]
     Active Substance: NADOLOL
     Indication: CARDIAC DISORDER
  9. PRAVASTATIN SODIUM. [Concomitant]
     Active Substance: PRAVASTATIN SODIUM
     Indication: BLOOD CHOLESTEROL DECREASED
     Dosage: 20 MG, 1X/DAY
     Route: 048

REACTIONS (2)
  - Eczema [Not Recovered/Not Resolved]
  - Rash [Unknown]
